FAERS Safety Report 6969184-5 (Version None)
Quarter: 2010Q3

REPORT INFORMATION
  Report Type: 
  Country: None (occurrence: None)
  Receive Date: 20100907
  Receipt Date: 20100830
  Transmission Date: 20110219
  Serious: Yes (Other)
  Sender: FDA-Public Use
  Company Number: PHHY2010MX31248

PATIENT
  Sex: Female

DRUGS (4)
  1. ZOMETA [Suspect]
     Indication: NEOPLASM MALIGNANT
     Dosage: 1 INFUSION (4 MG/5ML)
     Route: 042
     Dates: start: 20050810
  2. CALCIUM [Concomitant]
  3. VITAMIN D [Concomitant]
  4. RISEDRONATE SODIUM [Concomitant]

REACTIONS (6)
  - BLOOD PRESSURE DECREASED [None]
  - BODY TEMPERATURE DECREASED [None]
  - COLD SWEAT [None]
  - DIZZINESS [None]
  - PALLOR [None]
  - TACHYCARDIA [None]
